FAERS Safety Report 25496004 (Version 9)
Quarter: 2025Q3

REPORT INFORMATION
  Report Type: Spontaneous
  Country: EU (occurrence: EU)
  Receive Date: 20250630
  Receipt Date: 20250812
  Transmission Date: 20251021
  Serious: Yes (Hospitalization, Other)
  Sender: NOVARTIS
  Company Number: EU-002147023-NVSC2025FR104183

PATIENT
  Age: 19 Year
  Sex: Female
  Weight: 56 kg

DRUGS (4)
  1. KESIMPTA [Suspect]
     Active Substance: OFATUMUMAB
     Indication: Multiple sclerosis
     Route: 058
     Dates: start: 20250512, end: 20250512
  2. KESIMPTA [Suspect]
     Active Substance: OFATUMUMAB
     Route: 058
     Dates: start: 20250519, end: 20250519
  3. KESIMPTA [Suspect]
     Active Substance: OFATUMUMAB
     Route: 058
     Dates: start: 20250526, end: 20250526
  4. SOLU-MEDROL [Concomitant]
     Active Substance: METHYLPREDNISOLONE SODIUM SUCCINATE
     Indication: Optic neuritis
     Route: 065

REACTIONS (11)
  - Hepatocellular injury [Not Recovered/Not Resolved]
  - Hepatitis acute [Recovered/Resolved]
  - Drug-induced liver injury [Unknown]
  - Hepatic cytolysis [Unknown]
  - Immunoglobulins abnormal [Unknown]
  - Blood bilirubin increased [Unknown]
  - Bilirubin conjugated increased [Unknown]
  - Alanine aminotransferase increased [Recovered/Resolved]
  - Aspartate aminotransferase increased [Recovered/Resolved]
  - Blood lactate dehydrogenase increased [Unknown]
  - Gilbert^s syndrome [Unknown]

NARRATIVE: CASE EVENT DATE: 20250601
